FAERS Safety Report 8798385 (Version 1)
Quarter: 2012Q4

REPORT INFORMATION
  Report Type: 
  Country: DK (occurrence: SE)
  Receive Date: 20120920
  Receipt Date: 20120920
  Transmission Date: 20130627
  Serious: Yes (Other)
  Sender: FDA-Public Use
  Company Number: SE-FRI-1000038717

PATIENT
  Age: 18 Year
  Sex: Female

DRUGS (2)
  1. ESCITALOPRAM [Suspect]
     Indication: PREMENSTRUAL SYNDROME
     Dosage: 10 mg
     Route: 048
     Dates: start: 20120822, end: 20120824
  2. ESCITALOPRAM [Suspect]
     Dosage: 20 mg intermittently for 14-16 days per menstrual cycle
     Route: 048
     Dates: start: 20120825

REACTIONS (4)
  - Suicidal ideation [Not Recovered/Not Resolved]
  - Menstruation delayed [Not Recovered/Not Resolved]
  - Weight decreased [Not Recovered/Not Resolved]
  - Contusion [Not Recovered/Not Resolved]
